FAERS Safety Report 6721828-9 (Version None)
Quarter: 2010Q2

REPORT INFORMATION
  Report Type: 
  Country: None (occurrence: None)
  Receive Date: 20100510
  Receipt Date: 20091209
  Transmission Date: 20101027
  Serious: Yes (Other)
  Sender: FDA-Public Use
  Company Number: 056-20484-08110873

PATIENT
  Age: 51 Year
  Sex: Male

DRUGS (2)
  1. INNOHEP [Suspect]
     Indication: FOOT FRACTURE
     Dosage: 4500 IU, SUBCUTANEOUS
     Route: 058
     Dates: start: 20080918, end: 20081004
  2. ARIXTRA [Suspect]
     Dosage: 2.5 MG, SUBCUTANEOUS
     Route: 058
     Dates: start: 20080912, end: 20080918

REACTIONS (5)
  - DEEP VEIN THROMBOSIS [None]
  - DRUG INEFFECTIVE [None]
  - OFF LABEL USE [None]
  - PAIN IN EXTREMITY [None]
  - PHLEBITIS [None]
